FAERS Safety Report 13301333 (Version 3)
Quarter: 2017Q4

REPORT INFORMATION
  Report Type: Spontaneous
  Country: US (occurrence: US)
  Receive Date: 20170307
  Receipt Date: 20171107
  Transmission Date: 20180320
  Serious: No
  Sender: FDA-Public Use
  Company Number: US-PFIZER INC-2017096421

PATIENT
  Age: 57 Year
  Sex: Female
  Weight: 54 kg

DRUGS (15)
  1. KENALOG [Concomitant]
     Active Substance: TRIAMCINOLONE ACETONIDE
     Dosage: 40 MG, UNK (INJECT 40 MG NOW)
     Route: 030
     Dates: start: 20170113
  2. PREDNISONE. [Concomitant]
     Active Substance: PREDNISONE
     Dosage: 5 MG, DAILY (TAKE THREE TABLETS FOR 10 DAYS. THEN TWO TABLETS)
     Route: 048
  3. XELJANZ XR [Suspect]
     Active Substance: TOFACITINIB CITRATE
     Indication: RHEUMATOID ARTHRITIS
     Dosage: 11 MG, ONCE A DAY
     Route: 048
     Dates: start: 20170123
  4. VITAMIN D [Concomitant]
     Active Substance: CHOLECALCIFEROL
     Dosage: UNK
  5. FOLIC ACID. [Concomitant]
     Active Substance: FOLIC ACID
     Dosage: 1 MG, DAILY
     Route: 048
     Dates: start: 20170113
  6. VITAMIN B12 [Concomitant]
     Active Substance: CYANOCOBALAMIN
     Dosage: 100 UG, DAILY
     Route: 048
     Dates: start: 20170113
  7. DEPO-MEDROL [Concomitant]
     Active Substance: METHYLPREDNISOLONE ACETATE
     Dosage: 40 MG, UNK (INJECT 40 MG NOW)
     Route: 030
     Dates: start: 20170113
  8. PREDNISONE. [Concomitant]
     Active Substance: PREDNISONE
     Dosage: 10 MG, DAILY (TAKE THREE TABLETS FOR 10 DAYS;THEN, TWO TABLETS)
     Route: 048
  9. ZINC. [Concomitant]
     Active Substance: ZINC
     Dosage: 50 MG, DAILY
     Route: 048
     Dates: start: 20161206
  10. CALCIUM [Concomitant]
     Active Substance: CALCIUM
     Dosage: UNK, 2X/DAY (600,TAKE ONE TABLET)
     Route: 048
     Dates: start: 20170117
  11. VITAMIN D2 [Concomitant]
     Active Substance: ERGOCALCIFEROL
     Dosage: 50000 IU, WEEKLY
     Route: 048
  12. PREDNISONE. [Concomitant]
     Active Substance: PREDNISONE
     Indication: RHEUMATOID ARTHRITIS
     Dosage: 15 MG, DAILY (TAKE THREE TABLETS FOR 10 DAYS;THEN, TWO TABLETS )
     Route: 048
  13. XELJANZ [Suspect]
     Active Substance: TOFACITINIB CITRATE
     Indication: RHEUMATOID ARTHRITIS
     Dosage: 5 MG, 2X/DAY
     Route: 048
  14. MULTIVITAMINS [Concomitant]
     Active Substance: VITAMINS
     Dosage: 1 DF, DAILY
     Route: 048
     Dates: start: 20161206
  15. ALEVE [Concomitant]
     Active Substance: NAPROXEN SODIUM
     Dosage: 440 MG, AS NEEDED (TAKE 2 TABLETS EVERY 12 HOURS )
     Route: 048
     Dates: start: 20161206

REACTIONS (4)
  - Drug ineffective [Unknown]
  - Arthropathy [Unknown]
  - Gait disturbance [Unknown]
  - Musculoskeletal stiffness [Unknown]
